FAERS Safety Report 7600514-7 (Version None)
Quarter: 2011Q3

REPORT INFORMATION
  Report Type: 
  Country: None (occurrence: None)
  Receive Date: 20110711
  Receipt Date: 20110707
  Transmission Date: 20111222
  Serious: Yes (Death)
  Sender: FDA-Public Use
  Company Number: ZA-SANOFI-AVENTIS-2011SA042991

PATIENT
  Age: 58 Year
  Sex: Female

DRUGS (2)
  1. MOXIFLOXACIN [Suspect]
     Indication: BRONCHOPNEUMONIA
     Route: 065
  2. KETEK [Suspect]
     Indication: BRONCHOPNEUMONIA
     Route: 065

REACTIONS (4)
  - VENTRICULAR FIBRILLATION [None]
  - CONVULSION [None]
  - LONG QT SYNDROME [None]
  - ELECTROCARDIOGRAM QT PROLONGED [None]
